FAERS Safety Report 11798996 (Version 3)
Quarter: 2016Q1

REPORT INFORMATION
  Report Type: Report from Study
  Country: US (occurrence: US)
  Receive Date: 20151203
  Receipt Date: 20160129
  Transmission Date: 20160525
  Serious: No
  Sender: FDA-Public Use
  Company Number: US-AMGEN-USASL2015119336

PATIENT
  Age: 67 Year
  Sex: Male

DRUGS (2)
  1. REPATHA [Suspect]
     Active Substance: EVOLOCUMAB
     Indication: DYSLIPIDAEMIA
     Dosage: 145 MG, Q2WK
     Route: 058
     Dates: start: 20151015
  2. LIVALO [Suspect]
     Active Substance: PITAVASTATIN CALCIUM
     Indication: HYPERLIPIDAEMIA
     Dosage: 2 MG, QHS
     Route: 048
     Dates: start: 20151015, end: 20151119

REACTIONS (4)
  - Myalgia [Recovered/Resolved]
  - Musculoskeletal discomfort [Unknown]
  - Limb discomfort [Unknown]
  - Bone pain [Unknown]

NARRATIVE: CASE EVENT DATE: 201510
